FAERS Safety Report 23763260 (Version 1)
Quarter: 2024Q2

REPORT INFORMATION
  Report Type: Spontaneous
  Country: CN (occurrence: CN)
  Receive Date: 20240419
  Receipt Date: 20240419
  Transmission Date: 20240715
  Serious: Yes (Other)
  Sender: FDA-Public Use
  Company Number: CN-Merck Healthcare KGaA-2024020074

PATIENT
  Age: 53 Year
  Sex: Female

DRUGS (4)
  1. ERBITUX [Suspect]
     Active Substance: CETUXIMAB
     Indication: Rectal cancer
     Dosage: 760 MG, UNKNOWN
     Route: 041
     Dates: start: 20240315, end: 20240315
  2. OXALIPLATIN [Suspect]
     Active Substance: OXALIPLATIN
     Indication: Rectal cancer
     Dosage: 130 MG, DAILY
     Route: 041
     Dates: start: 20240315, end: 20240315
  3. FLUOROURACIL [Suspect]
     Active Substance: FLUOROURACIL
     Indication: Rectal cancer
     Dosage: 4.2 G, DAILY
     Route: 041
     Dates: start: 20240315, end: 20240315
  4. LEVOLEUCOVORIN CALCIUM [Concomitant]
     Active Substance: LEVOLEUCOVORIN CALCIUM
     Indication: Rectal cancer
     Dosage: 300 MG, DAILY
     Route: 041
     Dates: start: 20240315, end: 20240315

REACTIONS (1)
  - Granulocyte count decreased [Recovered/Resolved]

NARRATIVE: CASE EVENT DATE: 20240401
